FAERS Safety Report 18777873 (Version 10)
Quarter: 2022Q1

REPORT INFORMATION
  Report Type: Spontaneous
  Country: US (occurrence: US)
  Receive Date: 20210122
  Receipt Date: 20220204
  Transmission Date: 20220423
  Serious: Yes (Hospitalization, Other)
  Sender: FDA-Public Use
  Company Number: US-SEATTLE GENETICS-2020SGN04179

PATIENT
  Age: 60 Year
  Sex: Female

DRUGS (10)
  1. TUKYSA [Suspect]
     Active Substance: TUCATINIB
     Indication: Breast cancer female
     Dosage: UNK
     Route: 065
  2. TUKYSA [Suspect]
     Active Substance: TUCATINIB
     Dosage: UNK
     Route: 065
  3. TUKYSA [Suspect]
     Active Substance: TUCATINIB
     Dosage: UNK
     Route: 065
  4. TUKYSA [Suspect]
     Active Substance: TUCATINIB
     Dosage: UNK
     Route: 065
  5. TUKYSA [Suspect]
     Active Substance: TUCATINIB
     Dosage: UNK
     Route: 065
  6. TUKYSA [Suspect]
     Active Substance: TUCATINIB
     Dosage: UNK
     Route: 065
  7. TUKYSA [Suspect]
     Active Substance: TUCATINIB
     Dosage: UNK
     Route: 065
  8. TUKYSA [Suspect]
     Active Substance: TUCATINIB
     Dosage: UNK
     Route: 065
  9. CAPECITABINE [Suspect]
     Active Substance: CAPECITABINE
     Indication: Breast cancer female
     Route: 065
  10. HERCEPTIN [Concomitant]
     Active Substance: TRASTUZUMAB
     Route: 065

REACTIONS (45)
  - Surgery [Unknown]
  - Brain neoplasm malignant [Unknown]
  - Unevaluable therapy [Recovered/Resolved]
  - Dry skin [Unknown]
  - Abdominal pain upper [Unknown]
  - Eructation [Unknown]
  - Hypoaesthesia [Unknown]
  - Pruritus [Unknown]
  - Salivary gland enlargement [Unknown]
  - Salivary gland disorder [Unknown]
  - Skin discolouration [Recovering/Resolving]
  - Flatulence [Unknown]
  - Frustration tolerance decreased [Unknown]
  - Stress at work [Unknown]
  - Adverse reaction [Unknown]
  - Liver disorder [Unknown]
  - Ingrowing nail [Unknown]
  - Constipation [Unknown]
  - Haemorrhoids [Unknown]
  - Blister [Unknown]
  - Abdominal discomfort [Recovering/Resolving]
  - Confusional state [Unknown]
  - Taste disorder [Unknown]
  - Memory impairment [Unknown]
  - Unevaluable event [Unknown]
  - Alopecia [Unknown]
  - Asthenia [Unknown]
  - Skin discolouration [Unknown]
  - Abdominal distension [Unknown]
  - Memory impairment [Unknown]
  - Accident at home [Unknown]
  - Vertigo [Unknown]
  - Muscular weakness [Unknown]
  - Product dose omission in error [Unknown]
  - Peripheral swelling [Unknown]
  - Dehydration [Unknown]
  - Hepatic enzyme increased [Unknown]
  - Palmar-plantar erythrodysaesthesia syndrome [Unknown]
  - Epistaxis [Unknown]
  - Skin exfoliation [Unknown]
  - Rash [Unknown]
  - Diarrhoea [Unknown]
  - Product dose omission in error [Unknown]
  - Feeling abnormal [Unknown]
  - Headache [Unknown]

NARRATIVE: CASE EVENT DATE: 20200916
